FAERS Safety Report 7592939-3 (Version None)
Quarter: 2011Q3

REPORT INFORMATION
  Report Type: 
  Country: None (occurrence: None)
  Receive Date: 20110706
  Receipt Date: 20110609
  Transmission Date: 20111222
  Serious: Yes (Death, Hospitalization)
  Sender: FDA-Public Use
  Company Number: US-GLAXOSMITHKLINE-A0786521A

PATIENT
  Age: 62 Year
  Sex: Male

DRUGS (5)
  1. THEOPHYLLINE [Concomitant]
  2. CAPTOPRIL [Concomitant]
  3. COUMADIN [Concomitant]
  4. AVANDIA [Suspect]
     Indication: DIABETES MELLITUS
     Dosage: 4MG TWICE PER DAY
     Route: 048
     Dates: start: 20040427, end: 20050214
  5. ZOCOR [Concomitant]

REACTIONS (3)
  - ARRHYTHMIA [None]
  - MYOCARDIAL INFARCTION [None]
  - CARDIAC FAILURE CONGESTIVE [None]
